FAERS Safety Report 8292439-1 (Version None)
Quarter: 2012Q2

REPORT INFORMATION
  Report Type: 
  Country: None (occurrence: None)
  Receive Date: 20120417
  Receipt Date: 20120112
  Transmission Date: 20120825
  Serious: Yes (Hospitalization)
  Sender: FDA-Public Use
  Company Number: SE-ROCHE-1059829

PATIENT
  Sex: Female

DRUGS (3)
  1. RANIBIZUMAB [Suspect]
     Indication: DIABETIC RETINOPATHY
     Dosage: 10 MG/ML 0.5 MG
     Route: 050
     Dates: start: 20110719, end: 20111021
  2. XALATAN [Concomitant]
  3. BLOCADREN [Concomitant]

REACTIONS (1)
  - TRANSIENT ISCHAEMIC ATTACK [None]
